FAERS Safety Report 4538055-6 (Version None)
Quarter: 2004Q4

REPORT INFORMATION
  Report Type: 
  Country: None (occurrence: None)
  Receive Date: 20041223
  Receipt Date: 20041223
  Transmission Date: 20050328
  Serious: Yes (Other)
  Sender: FDA-Public Use
  Company Number: None

PATIENT
  Sex: Male

DRUGS (1)
  1. ZOCOR [Suspect]
     Dosage: 1 PO HS
     Route: 048
     Dates: start: 20030101, end: 20041130

REACTIONS (2)
  - NAUSEA [None]
  - VOMITING [None]
